FAERS Safety Report 25851216 (Version 1)
Quarter: 2025Q3

REPORT INFORMATION
  Report Type: Spontaneous
  Country: ID (occurrence: ID)
  Receive Date: 20250926
  Receipt Date: 20250926
  Transmission Date: 20251020
  Serious: Yes (Life-Threatening, Other)
  Sender: AUROBINDO
  Company Number: ID-AUROBINDO-AUR-APL-2025-049032

PATIENT
  Age: 55 Year
  Sex: Female

DRUGS (9)
  1. ATORVASTATIN [Suspect]
     Active Substance: ATORVASTATIN
     Indication: Acute myocardial infarction
     Route: 065
  2. ATORVASTATIN [Suspect]
     Active Substance: ATORVASTATIN
     Indication: Myocardial infarction
  3. ASPIRIN [Suspect]
     Active Substance: ASPIRIN
     Indication: Myocardial infarction
     Route: 065
  4. ASPIRIN [Suspect]
     Active Substance: ASPIRIN
     Indication: Acute myocardial infarction
  5. CLOPIDOGREL [Suspect]
     Active Substance: CLOPIDOGREL BISULFATE
     Indication: Myocardial infarction
     Route: 065
  6. CLOPIDOGREL [Suspect]
     Active Substance: CLOPIDOGREL BISULFATE
     Indication: Acute myocardial infarction
  7. STREPTOKINASE [Suspect]
     Active Substance: STREPTOKINASE
     Indication: Myocardial infarction
     Route: 065
  8. STREPTOKINASE [Suspect]
     Active Substance: STREPTOKINASE
     Indication: Acute myocardial infarction
  9. STREPTOKINASE [Suspect]
     Active Substance: STREPTOKINASE
     Indication: Thrombolysis

REACTIONS (1)
  - Treatment failure [Unknown]
